FAERS Safety Report 18791582 (Version 1)
Quarter: 2021Q1

REPORT INFORMATION
  Report Type: Spontaneous
  Country: US (occurrence: US)
  Receive Date: 20210126
  Receipt Date: 20210126
  Transmission Date: 20210419
  Serious: No
  Sender: FDA-Public Use
  Company Number: US-PERRIGO-20US006971

PATIENT
  Age: 9 Month
  Sex: Male
  Weight: 8.62 kg

DRUGS (1)
  1. IBUPROFEN. [Suspect]
     Active Substance: IBUPROFEN
     Indication: TEETHING
     Dosage: 80 MG, EVERY 6 TO 8 HOURS, PRN
     Route: 048
     Dates: start: 202002, end: 20200510

REACTIONS (3)
  - Cough [Recovered/Resolved]
  - Choking [Recovered/Resolved]
  - Product administered to patient of inappropriate age [Recovered/Resolved]

NARRATIVE: CASE EVENT DATE: 202002
